FAERS Safety Report 6148705-9 (Version None)
Quarter: 2009Q2

REPORT INFORMATION
  Report Type: 
  Country: None (occurrence: None)
  Receive Date: 20090406
  Receipt Date: 20090406
  Transmission Date: 20091009
  Serious: No
  Sender: FDA-Public Use
  Company Number: None

PATIENT
  Age: 24 Year
  Sex: Female

DRUGS (1)
  1. MURAD ACNE COMPLEX [Suspect]
     Dosage: ONCE A DAY, FIRST USE
     Dates: start: 20090320, end: 20090101

REACTIONS (4)
  - APPLICATION SITE IRRITATION [None]
  - APPLICATION SITE PRURITUS [None]
  - BLISTER [None]
  - ERYTHEMA [None]
